FAERS Safety Report 25995463 (Version 1)
Quarter: 2025Q4

REPORT INFORMATION
  Report Type: Spontaneous
  Country: EU (occurrence: EU)
  Receive Date: 20251104
  Receipt Date: 20251104
  Transmission Date: 20260118
  Serious: Yes (Death, Hospitalization, Other)
  Sender: GLAXOSMITHKLINE
  Company Number: None

PATIENT
  Age: 77 Year
  Sex: Male

DRUGS (2)
  1. MOMELOTINIB [Suspect]
     Active Substance: MOMELOTINIB
     Indication: Anaemia
     Dosage: 200 MG, QD (200MG 1 TABLET/DAY)
  2. MOMELOTINIB [Suspect]
     Active Substance: MOMELOTINIB
     Indication: Splenomegaly

REACTIONS (2)
  - Metabolic acidosis [Fatal]
  - Acute kidney injury [Unknown]

NARRATIVE: CASE EVENT DATE: 20250701
